FAERS Safety Report 13375892 (Version 2)
Quarter: 2018Q3

REPORT INFORMATION
  Report Type: Spontaneous
  Country: PL (occurrence: PL)
  Receive Date: 20170328
  Receipt Date: 20180717
  Transmission Date: 20181010
  Serious: Yes (Life-Threatening)
  Sender: FDA-Public Use
  Company Number: PL-ACCORD-049533

PATIENT
  Age: 64 Month
  Sex: Male

DRUGS (5)
  1. GLIVEC [Suspect]
     Active Substance: IMATINIB MESYLATE
     Indication: FIBROMATOSIS
     Dates: start: 201305
  2. VINCRISTINE [Suspect]
     Active Substance: VINCRISTINE
     Indication: FIBROMATOSIS
     Dosage: 3 UNIT IN CYCLE
     Dates: start: 201303
  3. METHOTREXATE. [Suspect]
     Active Substance: METHOTREXATE
     Indication: FIBROMATOSIS
     Dosage: 10 UNIT IN A CYCLE
     Dates: start: 201211, end: 201301
  4. TAMOXIFEN [Suspect]
     Active Substance: TAMOXIFEN
     Indication: FIBROMATOSIS
     Dates: start: 201311
  5. VINBLASTINE [Suspect]
     Active Substance: VINBLASTINE
     Indication: FIBROMATOSIS
     Dosage: 10 UNIT IN A CYCLE
     Dates: start: 201211, end: 201301

REACTIONS (2)
  - Drug ineffective [Unknown]
  - Off label use [Unknown]
